FAERS Safety Report 18540475 (Version 7)
Quarter: 2022Q2

REPORT INFORMATION
  Report Type: Spontaneous
  Country: US (occurrence: US)
  Receive Date: 20201124
  Receipt Date: 20220401
  Transmission Date: 20220720
  Serious: No
  Sender: FDA-Public Use
  Company Number: US-PFIZER INC-2020457146

PATIENT
  Age: 63 Year
  Sex: Female
  Weight: 80.1 kg

DRUGS (20)
  1. IBRANCE [Suspect]
     Active Substance: PALBOCICLIB
     Indication: Breast cancer female
     Dosage: 125 MG, CYCLIC (TAKE ONCE DAILY FOR 21 DAYS AND OFF 7 DAYS)
     Dates: start: 20201023
  2. IBRANCE [Suspect]
     Active Substance: PALBOCICLIB
     Indication: Metastases to bone
  3. LETROZOLE [Concomitant]
     Active Substance: LETROZOLE
     Indication: Neoplasm malignant
     Dosage: 2.5 MG, 1X/DAY
     Route: 048
     Dates: start: 202006
  4. ROBAXIN [Concomitant]
     Active Substance: METHOCARBAMOL
     Indication: Muscle relaxant therapy
     Dosage: UNK
  5. BENADRYL [Concomitant]
     Active Substance: DIPHENHYDRAMINE HYDROCHLORIDE
     Indication: Premedication
     Dosage: UNK
  6. AMLODIPINE BESYLATE [Concomitant]
     Active Substance: AMLODIPINE BESYLATE
     Indication: Blood pressure abnormal
     Dosage: 5 MG, 1X/DAY
     Route: 048
  7. LISINOPRIL [Concomitant]
     Active Substance: LISINOPRIL
     Indication: Blood pressure abnormal
     Dosage: 20 MG, 1X/DAY
     Route: 048
  8. HYDROCHLOROTHIAZIDE [Concomitant]
     Active Substance: HYDROCHLOROTHIAZIDE
     Dosage: 12.5 MG, 1X/DAY
     Route: 048
     Dates: end: 202007
  9. SIMVASTATIN [Concomitant]
     Active Substance: SIMVASTATIN
     Indication: Blood cholesterol abnormal
     Dosage: 40 MG, 1X/DAY
     Route: 048
     Dates: end: 202007
  10. OXYBUTYNIN [Concomitant]
     Active Substance: OXYBUTYNIN
     Indication: Bladder discomfort
     Dosage: 5 MG, 1X/DAY
     Route: 048
  11. SERTRALINE HYDROCHLORIDE [Concomitant]
     Active Substance: SERTRALINE HYDROCHLORIDE
     Indication: Depression
     Dosage: 100 MG, 2X/DAY
     Route: 048
  12. METHOCARBAMOL [Concomitant]
     Active Substance: METHOCARBAMOL
     Indication: Tension
     Dosage: 750 MG, AS NEEDED (TAKE THREE TIMES DAILY)
     Route: 048
  13. METHOCARBAMOL [Concomitant]
     Active Substance: METHOCARBAMOL
     Indication: Muscle tightness
  14. CALTRATE +D [CALCIUM CARBONATE;ERGOCALCIFEROL] [Concomitant]
     Dosage: UNK, 1X/DAY
     Route: 048
     Dates: start: 202007
  15. ALPRAZOLAM [Concomitant]
     Active Substance: ALPRAZOLAM
     Indication: Sleep disorder
     Dosage: 0.25 MG, AS NEEDED
     Route: 048
     Dates: start: 20200904
  16. CETIRIZINE HCL [Concomitant]
     Active Substance: CETIRIZINE HYDROCHLORIDE
     Indication: Otorrhoea
     Dosage: 10 MG, 1X/DAY (MG TAKE ONCE DAILY AT NIGHT )
     Route: 048
  17. BASAGLAR [Concomitant]
     Active Substance: INSULIN GLARGINE
     Indication: Diabetes mellitus
     Dosage: 20 IU, DAILY (20 UNITS DAILY BY INJECTION)
  18. TRAZODONE [Concomitant]
     Active Substance: TRAZODONE HYDROCHLORIDE
     Indication: Sleep disorder
     Dosage: 50 MG, 1X/DAY
     Route: 048
     Dates: start: 20200904
  19. SUCRALFATE [Concomitant]
     Active Substance: SUCRALFATE
     Indication: Abdominal pain upper
     Dosage: 1 G, 4X/DAY (1GM TAKE BEFORE MEALS FOUR TIMES DAILY)
     Route: 048
     Dates: start: 20200915
  20. GLIPIZIDE [Concomitant]
     Active Substance: GLIPIZIDE
     Indication: Diabetes mellitus
     Dosage: 5 MG, 2X/DAY
     Route: 048

REACTIONS (17)
  - Neoplasm progression [Unknown]
  - Chest pain [Unknown]
  - Condition aggravated [Unknown]
  - Decreased appetite [Unknown]
  - Fluid retention [Unknown]
  - Hypoaesthesia [Unknown]
  - Pain [Unknown]
  - Sleep apnoea syndrome [Unknown]
  - Weight decreased [Unknown]
  - Thinking abnormal [Unknown]
  - Emotional distress [Unknown]
  - Feeling abnormal [Unknown]
  - Hypoaesthesia [Unknown]
  - Hypoaesthesia oral [Not Recovered/Not Resolved]
  - Frustration tolerance decreased [Unknown]
  - Dizziness [Unknown]
  - Nausea [Unknown]

NARRATIVE: CASE EVENT DATE: 20200101
